FAERS Safety Report 7930193-0 (Version None)
Quarter: 2011Q4

REPORT INFORMATION
  Report Type: 
  Country: None (occurrence: None)
  Receive Date: 20111121
  Receipt Date: 20111109
  Transmission Date: 20120403
  Serious: Yes (Other)
  Sender: FDA-Public Use
  Company Number: US-BAYER-2011-056952

PATIENT
  Age: 23 Year
  Sex: Female
  Weight: 77.098 kg

DRUGS (9)
  1. ALBUTEROL [Concomitant]
     Route: 055
  2. YAZ [Suspect]
     Indication: ACNE
  3. YASMIN [Suspect]
     Indication: ACNE
  4. PHENERGAN [Concomitant]
     Dosage: UNK
     Route: 048
     Dates: start: 20091109
  5. ALPRAZOLAM [Concomitant]
     Route: 048
  6. IBUPROFEN [Concomitant]
     Route: 048
  7. YAZ [Suspect]
     Indication: CONTRACEPTION
     Dosage: UNK
     Dates: start: 20090506, end: 20090701
  8. YASMIN [Suspect]
     Indication: CONTRACEPTION
     Dosage: UNK
     Dates: start: 20060816, end: 20061101
  9. IRON [Concomitant]
     Route: 048

REACTIONS (11)
  - ASTHENIA [None]
  - BILIARY DYSKINESIA [None]
  - FATIGUE [None]
  - CHOLECYSTECTOMY [None]
  - DYSPNOEA [None]
  - DEPRESSION [None]
  - INJURY [None]
  - ABDOMINAL PAIN UPPER [None]
  - MENTAL DISORDER [None]
  - DECREASED APPETITE [None]
  - ANXIETY [None]
